FAERS Safety Report 9384733 (Version 2)
Quarter: 2013Q3

REPORT INFORMATION
  Report Type: Spontaneous
  Country: US (occurrence: US)
  Receive Date: 20130705
  Receipt Date: 20130822
  Transmission Date: 20140515
  Serious: Yes (Other)
  Sender: FDA-Public Use
  Company Number: CHPA2013US010651

PATIENT
  Age: 71 Year
  Sex: Female

DRUGS (2)
  1. PERDIEM OVERNIGHT RELIEF PILLS [Suspect]
     Indication: IRRITABLE BOWEL SYNDROME
     Dosage: 3 DF, QD
     Route: 048
  2. PEPCID [Concomitant]
     Dosage: UNK, PRN

REACTIONS (6)
  - Polyp [Recovered/Resolved]
  - Pneumonia [Recovered/Resolved]
  - Pain [Recovered/Resolved]
  - Bowel movement irregularity [Recovered/Resolved]
  - Off label use [Unknown]
  - Incorrect drug administration duration [Unknown]
